FAERS Safety Report 7222065-4 (Version None)
Quarter: 2011Q1

REPORT INFORMATION
  Report Type: 
  Country: None (occurrence: None)
  Receive Date: 20110112
  Receipt Date: 20101230
  Transmission Date: 20110831
  Serious: Yes (Disabling, Other)
  Sender: FDA-Public Use
  Company Number: ZA-CELGENEUS-143-21880-10120065

PATIENT
  Age: 54 Year
  Sex: Male

DRUGS (6)
  1. REVLIMID [Suspect]
     Indication: MULTIPLE MYELOMA
     Route: 048
     Dates: start: 20070201, end: 20080101
  2. ENDOXAN [Suspect]
     Indication: MULTIPLE MYELOMA
     Route: 048
  3. DEXAMETHASONE [Suspect]
     Route: 048
     Dates: start: 20060401
  4. VELCADE [Suspect]
     Indication: MULTIPLE MYELOMA
     Route: 051
     Dates: start: 20080101
  5. ZOMETA [Suspect]
     Indication: MULTIPLE MYELOMA
     Route: 051
     Dates: start: 20060401
  6. THALIDOMIDE [Suspect]
     Indication: MULTIPLE MYELOMA
     Route: 048
     Dates: start: 20060401, end: 20090301

REACTIONS (8)
  - ENCEPHALOPATHY [None]
  - NEUROPATHY PERIPHERAL [None]
  - MYALGIA [None]
  - ARTHRALGIA [None]
  - BONE PAIN [None]
  - AMNESIA [None]
  - ASTHENIA [None]
  - NO THERAPEUTIC RESPONSE [None]
